FAERS Safety Report 10051194 (Version 1)
Quarter: 2014Q2

REPORT INFORMATION
  Report Type: Spontaneous
  Country: US (occurrence: US)
  Receive Date: 20140401
  Receipt Date: 20140401
  Transmission Date: 20141212
  Serious: Yes (Hospitalization)
  Sender: FDA-Public Use
  Company Number: US-BAYER-2014-042726

PATIENT
  Age: 56 Year
  Sex: Female

DRUGS (4)
  1. CIPROFLOXACIN [Suspect]
     Indication: COLITIS ISCHAEMIC
  2. METRONIDAZOLE [Suspect]
     Indication: COLITIS ISCHAEMIC
  3. GANCICLOVIR [Concomitant]
     Indication: CYTOMEGALOVIRUS COLITIS
     Route: 042
  4. VALGANCICLOVIR [Concomitant]
     Indication: CYTOMEGALOVIRUS COLITIS
     Route: 048

REACTIONS (1)
  - Clostridium difficile colitis [None]
